FAERS Safety Report 8996783 (Version 1)
Quarter: 2012Q4

REPORT INFORMATION
  Report Type: Spontaneous
  Country: TW (occurrence: None)
  Receive Date: 20121220
  Receipt Date: 20121220
  Transmission Date: 20130627
  Serious: Yes (Hospitalization)
  Sender: FDA-Public Use
  Company Number: 2012-22138

PATIENT
  Age: 47 Year
  Sex: Male

DRUGS (2)
  1. PROPYLTHIOURACIL (AELLC) (PROPYLTHIOURACIL) UNKNOWN, UNKUNK [Suspect]
     Indication: GRAVES^ DISEASE
  2. PROPANOLOL /00030001/ (PROPRANOLOL) [Concomitant]

REACTIONS (3)
  - Leukocytoclastic vasculitis [None]
  - Cellulitis [None]
  - Skin necrosis [None]
